FAERS Safety Report 5812111-4 (Version None)
Quarter: 2008Q3

REPORT INFORMATION
  Report Type: 
  Country: None (occurrence: None)
  Receive Date: 20080716
  Receipt Date: 20080714
  Transmission Date: 20090109
  Serious: Yes (Death, Life-Threatening, Other)
  Sender: FDA-Public Use
  Company Number: US-ABBOTT-08P-163-0436893-00

PATIENT
  Sex: Male
  Weight: 84.444 kg

DRUGS (1)
  1. HUMIRA [Suspect]
     Indication: RHEUMATOID ARTHRITIS
     Route: 058
     Dates: start: 20030101, end: 20080101

REACTIONS (13)
  - ABDOMINAL MASS [None]
  - BONE NEOPLASM MALIGNANT [None]
  - COUGH [None]
  - HEPATIC NEOPLASM MALIGNANT [None]
  - INSOMNIA [None]
  - LUNG CANCER METASTATIC [None]
  - LUNG NEOPLASM MALIGNANT [None]
  - METASTASES TO CENTRAL NERVOUS SYSTEM [None]
  - METASTASES TO KIDNEY [None]
  - METASTASES TO LIVER [None]
  - METASTATIC MALIGNANT MELANOMA [None]
  - NASOPHARYNGITIS [None]
  - NAUSEA [None]
